FAERS Safety Report 8436319-7 (Version None)
Quarter: 2012Q2

REPORT INFORMATION
  Report Type: 
  Country: None (occurrence: None)
  Receive Date: 20120614
  Receipt Date: 20120601
  Transmission Date: 20120825
  Serious: Yes (Hospitalization, Other)
  Sender: FDA-Public Use
  Company Number: US-ELI_LILLY_AND_COMPANY-US201206000812

PATIENT
  Sex: Female
  Weight: 86.168 kg

DRUGS (8)
  1. EFFEXOR [Concomitant]
     Indication: DEPRESSION
     Dosage: 50 MG, QD
  2. CLONAZEPAM [Concomitant]
     Indication: ANXIETY
     Dosage: 0.5 MG, UNK
  3. ZYPREXA [Suspect]
     Indication: AFFECTIVE DISORDER
     Dosage: 5 MG, QD
  4. PROZAC [Suspect]
     Indication: DEPRESSION
     Dosage: 10 MG, QD
  5. COZAAR [Concomitant]
     Indication: HYPERTENSION
     Dosage: 50 MG, QD
  6. THYROID TAB [Concomitant]
  7. EFFEXOR [Concomitant]
     Dosage: 75 MG, QD
  8. PRISTIQ [Concomitant]
     Indication: DEPRESSION
     Dosage: 1 DF, UNK

REACTIONS (13)
  - DECREASED APPETITE [None]
  - BLOOD CHOLESTEROL INCREASED [None]
  - AUTOIMMUNE THYROIDITIS [None]
  - ALOPECIA [None]
  - GALLBLADDER OPERATION [None]
  - DEPRESSION [None]
  - ABDOMINAL DISCOMFORT [None]
  - EYE PAIN [None]
  - WEIGHT DECREASED [None]
  - HEADACHE [None]
  - HYPOKINESIA [None]
  - SURGERY [None]
  - BLOOD TRIGLYCERIDES INCREASED [None]
